FAERS Safety Report 6786423-4 (Version None)
Quarter: 2010Q2

REPORT INFORMATION
  Report Type: 
  Country: None (occurrence: None)
  Receive Date: 20100623
  Receipt Date: 20100615
  Transmission Date: 20101027
  Serious: Yes (Other)
  Sender: FDA-Public Use
  Company Number: A0865277A

PATIENT
  Age: 68 Year
  Sex: Male

DRUGS (5)
  1. ADVAIR DISKUS 100/50 [Suspect]
     Indication: ASTHMA
     Dosage: 1PUFF TWICE PER DAY
     Route: 055
     Dates: start: 20100601
  2. ALBUTEROL [Concomitant]
  3. COUMADIN [Concomitant]
  4. CLARITIN [Concomitant]
  5. SINGULAIR [Concomitant]

REACTIONS (1)
  - ASTHMA [None]
